FAERS Safety Report 10986026 (Version 1)
Quarter: 2015Q1

REPORT INFORMATION
  Report Type: Spontaneous
  Country: US (occurrence: None)
  Receive Date: 20150313
  Receipt Date: 20150313
  Transmission Date: 20150721
  Serious: Yes (Other)
  Sender: FDA-Public Use
  Company Number: 1483143

PATIENT
  Sex: Female

DRUGS (1)
  1. XOLAIR [Suspect]
     Active Substance: OMALIZUMAB
     Indication: CHRONIC SPONTANEOUS URTICARIA
     Dosage: (300 MG, 1 IN 1 M), SUBCUTANEOUS
     Route: 058
     Dates: start: 20140723

REACTIONS (1)
  - Myalgia [None]

NARRATIVE: CASE EVENT DATE: 20141023
